FAERS Safety Report 9875699 (Version 2)
Quarter: 2014Q1

REPORT INFORMATION
  Report Type: Other
  Country: US (occurrence: US)
  Receive Date: 20140206
  Receipt Date: 20140206
  Transmission Date: 20141002
  Serious: No
  Sender: FDA-Public Use
  Company Number: US-ACORDA-ACO_35713_2013

PATIENT
  Age: 66 Year
  Sex: Female
  Weight: 64.4 kg

DRUGS (20)
  1. AMPYRA [Suspect]
     Dosage: 10 MG, BID
  2. BACLOFEN [Concomitant]
     Indication: MUSCLE SPASTICITY
     Dosage: 10 MG, QID
     Route: 048
     Dates: start: 20110103
  3. NALTREXONE [Concomitant]
     Indication: MULTIPLE SCLEROSIS
     Dosage: 3 MG, QD
     Route: 048
     Dates: start: 20120424
  4. NEURONTIN [Concomitant]
     Indication: NEURALGIA
     Dosage: 300 MG, QID
     Route: 048
     Dates: start: 20110103
  5. TIZANIDINE [Concomitant]
     Indication: MUSCLE SPASMS
     Dosage: 4 MG TAB, 2 TABS QD AT HS
     Route: 048
     Dates: start: 20130311
  6. TIZANIDINE [Concomitant]
     Dosage: UNK
  7. SYNTHROID [Concomitant]
     Indication: THYROID DISORDER
     Dosage: 62.5 ?G, QD
     Route: 048
  8. NORVASC [Concomitant]
     Indication: HYPERTENSION
     Dosage: 2.5 MG, QD
     Route: 048
  9. MIRALAX [Concomitant]
     Indication: CONSTIPATION
     Dosage: 17 G, QD PRN
     Route: 048
  10. MACRODANTIN [Concomitant]
     Indication: URINARY TRACT INFECTION
     Dosage: 50 MG, QD
     Route: 048
  11. BISACODYL [Concomitant]
     Indication: CONSTIPATION
     Dosage: 10 MG, QD PRN
     Route: 054
  12. OTHER THERAPEUTIC PRODUCTS [Concomitant]
     Indication: PRODUCT USED FOR UNKNOWN INDICATION
     Dosage: UNK
     Route: 065
  13. CHLOROPHYLL [Concomitant]
     Indication: PRODUCT USED FOR UNKNOWN INDICATION
     Dosage: 0.6-3 MG QD
     Route: 048
  14. ESTRACE [Concomitant]
     Indication: HORMONE REPLACEMENT THERAPY
     Dosage: 1 MG, QD
     Route: 048
  15. FISH OIL [Concomitant]
     Indication: PRODUCT USED FOR UNKNOWN INDICATION
     Dosage: 1000 MG, QD
     Route: 048
  16. OCUVITE [Concomitant]
     Indication: PRODUCT USED FOR UNKNOWN INDICATION
     Dosage: 150/30/6/150, QD
     Route: 048
  17. OTHER THERAPEUTIC PRODUCTS [Concomitant]
     Indication: PRODUCT USED FOR UNKNOWN INDICATION
     Dosage: 1000 MG, QD
     Route: 048
  18. VITAMIN D [Concomitant]
     Indication: VITAMIN D DEFICIENCY
     Dosage: 4000 MG, QD
     Route: 048
  19. NARCAN [Concomitant]
     Indication: PRODUCT USED FOR UNKNOWN INDICATION
     Dosage: UNK
     Route: 048
  20. AMPYRA [Suspect]
     Indication: GAIT DISTURBANCE
     Dosage: 10 MG, QD
     Route: 048

REACTIONS (3)
  - Feeling abnormal [Recovered/Resolved]
  - Blood urine present [Unknown]
  - Medication error [Recovered/Resolved]
